FAERS Safety Report 4299024-7 (Version None)
Quarter: 2004Q1

REPORT INFORMATION
  Report Type: 
  Country: None (occurrence: None)
  Receive Date: 20040217
  Receipt Date: 20040203
  Transmission Date: 20041129
  Serious: Yes (Other)
  Sender: FDA-Public Use
  Company Number: 2004-02-0160

PATIENT
  Age: 74 Year
  Sex: Male

DRUGS (2)
  1. TEMODAL [Suspect]
     Indication: NEOPLASM RECURRENCE
     Dosage: ORAL
     Route: 048
     Dates: start: 19980401, end: 19990401
  2. TEMODAL [Suspect]
     Indication: OLIGODENDROGLIOMA
     Dosage: ORAL
     Route: 048
     Dates: start: 19980401, end: 19990401

REACTIONS (2)
  - ANAEMIA [None]
  - MYELODYSPLASTIC SYNDROME [None]
